FAERS Safety Report 8607590 (Version 2)
Quarter: 2013Q3

REPORT INFORMATION
  Report Type: Report from Study
  Country: MX (occurrence: MX)
  Receive Date: 20120611
  Receipt Date: 20130815
  Transmission Date: 20140515
  Serious: Yes (Hospitalization, Disabling, Other)
  Sender: FDA-Public Use
  Company Number: PHHY2012MX049272

PATIENT
  Age: 67 Year
  Sex: Female

DRUGS (6)
  1. ACLASTA [Suspect]
     Indication: OSTEOPOROSIS
     Dosage: 5 MG/100 ML, ONCE A YEAR
     Route: 042
     Dates: start: 201101
  2. LEVOTIROXINA [Concomitant]
     Indication: HYPOTHYROIDISM
     Dosage: UNK, ONCE A DAY
  3. ALENDRONIC ACID [Concomitant]
     Dosage: UNK, ONCE A DAY
  4. MICARDIS [Concomitant]
     Dosage: UNK, ONCE A DAY
  5. LIPITOR [Concomitant]
     Dosage: UNK, ONCE A DAY
  6. ADALAT [Concomitant]
     Dosage: UNK UKN, UNK

REACTIONS (13)
  - Abasia [Recovered/Resolved]
  - Spinal disorder [Not Recovered/Not Resolved]
  - Arthropathy [Not Recovered/Not Resolved]
  - Movement disorder [Not Recovered/Not Resolved]
  - Weight decreased [Recovered/Resolved]
  - Burning sensation [Not Recovered/Not Resolved]
  - Spinal pain [Not Recovered/Not Resolved]
  - Musculoskeletal pain [Not Recovered/Not Resolved]
  - Anaemia [Recovered/Resolved]
  - Arthralgia [Not Recovered/Not Resolved]
  - Decreased appetite [Recovered/Resolved]
  - Pain in extremity [Not Recovered/Not Resolved]
  - Musculoskeletal stiffness [Not Recovered/Not Resolved]
